FAERS Safety Report 7416243-9 (Version None)
Quarter: 2011Q2

REPORT INFORMATION
  Report Type: 
  Country: None (occurrence: None)
  Receive Date: 20110414
  Receipt Date: 20110412
  Transmission Date: 20111010
  Serious: Yes (Other)
  Sender: FDA-Public Use
  Company Number: FR-PFIZER INC-2011079830

PATIENT
  Age: 70 Year
  Sex: Male

DRUGS (2)
  1. TAHOR [Suspect]
     Dosage: 20 MG, 1X/DAY
     Dates: end: 20110409
  2. TAHOR [Suspect]
     Dosage: 10 MG, 1X/DAY
     Dates: start: 20040101

REACTIONS (2)
  - TENDON RUPTURE [None]
  - TENDON PAIN [None]
